FAERS Safety Report 9477942 (Version 1)
Quarter: 2013Q3

REPORT INFORMATION
  Report Type: Report from Study
  Country: CA (occurrence: CA)
  Receive Date: 20130827
  Receipt Date: 20130827
  Transmission Date: 20140515
  Serious: Yes (Other)
  Sender: FDA-Public Use
  Company Number: CA-JNJFOC-20130809715

PATIENT
  Age: 49 Year
  Sex: Male
  Weight: 84 kg

DRUGS (6)
  1. REMICADE [Suspect]
     Indication: CROHN^S DISEASE
     Route: 042
     Dates: start: 20030903
  2. SEROQUEL [Concomitant]
     Route: 065
  3. CODEINE [Concomitant]
     Route: 065
  4. CLONAZEPAM [Concomitant]
     Route: 065
  5. METHOTREXATE [Concomitant]
     Route: 065
  6. CIPROLEX [Concomitant]
     Route: 065

REACTIONS (3)
  - Haemorrhoidal haemorrhage [Not Recovered/Not Resolved]
  - Intestinal prolapse [Not Recovered/Not Resolved]
  - Proctalgia [Not Recovered/Not Resolved]
